FAERS Safety Report 10227528 (Version 2)
Quarter: 2014Q3

REPORT INFORMATION
  Report Type: Spontaneous
  Country: FI (occurrence: FI)
  Receive Date: 20140610
  Receipt Date: 20140827
  Transmission Date: 20150326
  Serious: Yes (Disabling)
  Sender: FDA-Public Use
  Company Number: PHHY2014FI070150

PATIENT
  Age: 50 Year
  Sex: Female

DRUGS (6)
  1. NEXIUM [Concomitant]
     Active Substance: ESOMEPRAZOLE MAGNESIUM
     Indication: DIAPHRAGMATIC HERNIA
     Dosage: 20 MG, QD
     Route: 048
  2. ALBETOL [Concomitant]
     Indication: PARAGANGLION NEOPLASM
  3. ZOMETA [Suspect]
     Active Substance: ZOLEDRONIC ACID
     Indication: PARAGANGLION NEOPLASM
  4. ALBETOL [Concomitant]
     Indication: HYPERTENSION
     Dosage: 25 MG, (1/4 TABLET FOUR TIMES A DAY)
     Route: 048
  5. ZOMETA [Suspect]
     Active Substance: ZOLEDRONIC ACID
     Indication: OSTEOLYSIS
     Dosage: UNK UKN, UNK
     Route: 042
     Dates: start: 201109, end: 201109
  6. EMCONCOR [Concomitant]
     Active Substance: BISOPROLOL FUMARATE
     Indication: TACHYCARDIA
     Dosage: 2.5 MG, BID
     Route: 048

REACTIONS (5)
  - Pain in jaw [Recovered/Resolved]
  - Osteonecrosis of jaw [Not Recovered/Not Resolved]
  - Fistula [Recovered/Resolved]
  - Osteomyelitis [Not Recovered/Not Resolved]
  - Headache [Recovered/Resolved]

NARRATIVE: CASE EVENT DATE: 201312
